FAERS Safety Report 8816063 (Version 2)
Quarter: 2012Q4

REPORT INFORMATION
  Report Type: 
  Country: US (occurrence: US)
  Receive Date: 20120928
  Receipt Date: 20121004
  Transmission Date: 20130627
  Serious: Yes (Hospitalization)
  Sender: FDA-Public Use
  Company Number: US-NOVOPROD-360496

PATIENT
  Age: 13 Year
  Sex: Male

DRUGS (2)
  1. NORDITROPIN FLEXPRO 6.7 MG/ML [Suspect]
     Indication: SMALL FOR DATES BABY
     Dosage: 1.9 mg, qd
     Route: 058
     Dates: start: 200912
  2. PREVACID [Concomitant]
     Indication: OESOPHAGITIS

REACTIONS (1)
  - Congenital hiatus hernia [Recovering/Resolving]
